FAERS Safety Report 19486391 (Version 2)
Quarter: 2022Q3

REPORT INFORMATION
  Report Type: Spontaneous
  Country: US (occurrence: US)
  Receive Date: 20210702
  Receipt Date: 20220812
  Transmission Date: 20221026
  Serious: Yes (Hospitalization)
  Sender: FDA-Public Use
  Company Number: US-IPCA LABORATORIES LIMITED-IPC-2021-US-001305

PATIENT

DRUGS (4)
  1. WARFARIN [Interacting]
     Active Substance: WARFARIN
     Indication: Antiphospholipid syndrome
     Dosage: 10 MILLIGRAM, QD
     Route: 065
  2. WARFARIN [Interacting]
     Active Substance: WARFARIN
     Indication: Prophylaxis
  3. APIXABAN [Concomitant]
     Active Substance: APIXABAN
     Indication: Antiphospholipid syndrome
     Dosage: UNK
     Route: 065
  4. APIXABAN [Concomitant]
     Active Substance: APIXABAN
     Indication: Prophylaxis

REACTIONS (5)
  - Periorbital haematoma [Unknown]
  - Ecchymosis [Unknown]
  - International normalised ratio increased [Recovering/Resolving]
  - Anticoagulation drug level below therapeutic [Recovering/Resolving]
  - Food interaction [Unknown]
